FAERS Safety Report 5243721-3 (Version None)
Quarter: 2007Q1

REPORT INFORMATION
  Report Type: 
  Country: None (occurrence: None)
  Receive Date: 20070222
  Receipt Date: 20070212
  Transmission Date: 20070707
  Serious: Yes (Hospitalization, Other)
  Sender: FDA-Public Use
  Company Number: PHEH2005US10976

PATIENT
  Age: 50 Year
  Sex: Female

DRUGS (7)
  1. SYNTHROID [Concomitant]
  2. ZOMETA [Suspect]
     Dosage: 4 MG, UNK
     Dates: start: 20020528, end: 20050405
  3. AREDIA [Suspect]
     Dosage: 90 MG, QMO
     Dates: start: 19980825, end: 20020423
  4. TAXOL [Concomitant]
  5. ARIMIDEX [Concomitant]
  6. FEMARA [Concomitant]
     Dosage: 2.5 MG, QD
  7. CHEMOTHERAPEUTICS,OTHER [Concomitant]
     Dates: start: 19980101, end: 20020101

REACTIONS (49)
  - ANKLE FRACTURE [None]
  - ARTIFICIAL CROWN PROCEDURE [None]
  - BONE DEBRIDEMENT [None]
  - BONE DISORDER [None]
  - CHEST PAIN [None]
  - COUGH [None]
  - CULTURE TISSUE SPECIMEN POSITIVE [None]
  - DENTAL CARIES [None]
  - DENTAL OPERATION [None]
  - DYSPHAGIA [None]
  - DYSPNOEA [None]
  - ENDODONTIC PROCEDURE [None]
  - EYE ABSCESS [None]
  - FALL [None]
  - FATIGUE [None]
  - FISTULA [None]
  - FISTULA REPAIR [None]
  - GINGIVAL DISORDER [None]
  - GRAFT COMPLICATION [None]
  - GRAM STAIN POSITIVE [None]
  - HAEMOPTYSIS [None]
  - HYPERBARIC OXYGEN THERAPY [None]
  - LABYRINTHITIS [None]
  - LUNG INFILTRATION [None]
  - MASTICATION DISORDER [None]
  - MAXILLOFACIAL OPERATION [None]
  - NAUSEA [None]
  - ORAL DISCHARGE [None]
  - ORAL PAIN [None]
  - OSTEOMYELITIS CHRONIC [None]
  - OSTEONECROSIS [None]
  - PAIN IN JAW [None]
  - PLEURAL EFFUSION [None]
  - PNEUMONIA PNEUMOCOCCAL [None]
  - PRIMARY SEQUESTRUM [None]
  - PROSTHESIS IMPLANTATION [None]
  - PYREXIA [None]
  - SINUS DISORDER [None]
  - SPEECH DISORDER [None]
  - SPUTUM PURULENT [None]
  - TOOTH ABSCESS [None]
  - TOOTH DISORDER [None]
  - TOOTH EXTRACTION [None]
  - TOOTH INFECTION [None]
  - TOOTHACHE [None]
  - VERTIGO [None]
  - VISUAL DISTURBANCE [None]
  - VOMITING [None]
  - WOUND DEHISCENCE [None]
